FAERS Safety Report 8401359-0 (Version None)
Quarter: 2012Q2

REPORT INFORMATION
  Report Type: 
  Country: None (occurrence: None)
  Receive Date: 20120529
  Receipt Date: 20120517
  Transmission Date: 20120825
  Serious: Yes (Life-Threatening, Hospitalization, Other)
  Sender: FDA-Public Use
  Company Number: NSR_00556_2012

PATIENT
  Age: 56 Year
  Sex: Male

DRUGS (5)
  1. CO-DYDRAMOL (CO-DYDRAMOL) [Suspect]
     Indication: PRODUCT USED FOR UNKNOWN INDICATION
     Dosage: TOOK 20 (10/500) TABLETS)
  2. TRAMADOL HCL [Suspect]
     Indication: PRODUCT USED FOR UNKNOWN INDICATION
     Dosage: TOOK 60 MG TABLETS
  3. SPIRIVA [Concomitant]
  4. ACETAMINOPHEN [Suspect]
     Indication: PRODUCT USED FOR UNKNOWN INDICATION
     Dosage: TOOK 10 G
  5. FLUTICASONE PROPIONATE/SALMETEROL [Concomitant]

REACTIONS (11)
  - INTENTIONAL OVERDOSE [None]
  - RESPIRATORY FAILURE [None]
  - HEART RATE INCREASED [None]
  - SOMNOLENCE [None]
  - AGITATION [None]
  - HYPONATRAEMIA [None]
  - INAPPROPRIATE ANTIDIURETIC HORMONE SECRETION [None]
  - MIOSIS [None]
  - METABOLIC DISORDER [None]
  - NERVOUS SYSTEM DISORDER [None]
  - RESPIRATORY RATE DECREASED [None]
